FAERS Safety Report 8097776-1 (Version None)
Quarter: 2012Q1

REPORT INFORMATION
  Report Type: 
  Country: None (occurrence: None)
  Receive Date: 20120128
  Receipt Date: 20110718
  Transmission Date: 20120608
  Serious: No
  Sender: FDA-Public Use
  Company Number: US-ABBOTT-11P-163-0839930-00

PATIENT
  Sex: Female
  Weight: 52.664 kg

DRUGS (4)
  1. HUMIRA [Suspect]
     Dosage: (80 MG, LOADING DOSE)
     Route: 058
     Dates: start: 20110301, end: 20110301
  2. HUMIRA [Suspect]
     Route: 058
     Dates: start: 20110401, end: 20110601
  3. CIMZIA [Concomitant]
     Indication: CROHN'S DISEASE
  4. HUMIRA [Suspect]
     Indication: CROHN'S DISEASE
     Dosage: (160 MG, LOADING DOSE)
     Route: 058
     Dates: start: 20110301, end: 20110301

REACTIONS (5)
  - HYPERSENSITIVITY [None]
  - INJECTION SITE SWELLING [None]
  - INJECTION SITE ERYTHEMA [None]
  - ILEITIS [None]
  - INJECTION SITE NODULE [None]
